FAERS Safety Report 5153177-7 (Version None)
Quarter: 2006Q4

REPORT INFORMATION
  Report Type: 
  Country: None (occurrence: None)
  Receive Date: 20061113
  Receipt Date: 20061026
  Transmission Date: 20070319
  Serious: Yes (Other)
  Sender: FDA-Public Use
  Company Number: 2006RR-04311

PATIENT
  Age: 66 Year
  Sex: Male
  Weight: 79.8 kg

DRUGS (4)
  1. SIMVASTATIN [Suspect]
     Indication: HYPERLIPIDAEMIA
     Dosage: 40 MG, ORAL
     Route: 048
     Dates: start: 20051214, end: 20060502
  2. FLOMAXTRA XL [Concomitant]
  3. NIQUITIN [Concomitant]
  4. TADALAFIL [Concomitant]

REACTIONS (2)
  - FEAR [None]
  - NIGHTMARE [None]
